FAERS Safety Report 20074288 (Version 2)
Quarter: 2021Q4

REPORT INFORMATION
  Report Type: Spontaneous
  Country: US (occurrence: US)
  Receive Date: 20211116
  Receipt Date: 20211123
  Transmission Date: 20220304
  Serious: No
  Sender: FDA-Public Use
  Company Number: US-009507513-2111USA000985

PATIENT
  Age: 10 Year
  Sex: Female
  Weight: 31 kg

DRUGS (3)
  1. CANCIDAS [Suspect]
     Active Substance: CASPOFUNGIN ACETATE
     Indication: Mucormycosis
     Dosage: UNK
  2. AMPHOTERICIN B [Concomitant]
     Active Substance: AMPHOTERICIN B
     Indication: Fungal infection
     Dosage: UNK
  3. VORICONAZOLE [Concomitant]
     Active Substance: VORICONAZOLE
     Indication: Fungal infection
     Dosage: UNK

REACTIONS (1)
  - Product use in unapproved indication [Unknown]
